FAERS Safety Report 7767416-7 (Version None)
Quarter: 2011Q3

REPORT INFORMATION
  Report Type: 
  Country: None (occurrence: None)
  Receive Date: 20110922
  Receipt Date: 20110621
  Transmission Date: 20111222
  Serious: No
  Sender: FDA-Public Use
  Company Number: US-ASTRAZENECA-2011SE37488

PATIENT
  Age: 20 Year
  Sex: Female

DRUGS (4)
  1. SEROQUEL [Suspect]
     Indication: AFFECTIVE DISORDER
     Route: 048
     Dates: start: 20101201, end: 20110601
  2. LAMICTAL [Concomitant]
  3. SEROQUEL [Suspect]
     Indication: SUBSTANCE ABUSE
     Route: 048
     Dates: start: 20101201, end: 20110601
  4. CELEXA [Concomitant]

REACTIONS (2)
  - DIABETES MELLITUS [None]
  - OFF LABEL USE [None]
